FAERS Safety Report 7010326-3 (Version None)
Quarter: 2010Q3

REPORT INFORMATION
  Report Type: 
  Country: None (occurrence: None)
  Receive Date: 20100923
  Receipt Date: 20100917
  Transmission Date: 20110219
  Serious: Yes (Hospitalization)
  Sender: FDA-Public Use
  Company Number: B0674872A

PATIENT
  Age: 81 Year
  Sex: Female

DRUGS (7)
  1. AUGMENTIN '125' [Suspect]
     Route: 048
     Dates: start: 20100616, end: 20100621
  2. PROFENID [Suspect]
     Indication: PRODUCT USED FOR UNKNOWN INDICATION
     Route: 065
     Dates: start: 20100619, end: 20100623
  3. TAVANIC [Suspect]
     Route: 048
     Dates: start: 20100616, end: 20100621
  4. PIPERACILLIN AND TAZOBACTAM [Suspect]
     Route: 048
     Dates: start: 20100621, end: 20100623
  5. VANCOMYCIN HCL [Suspect]
     Route: 048
     Dates: start: 20100623, end: 20100626
  6. CONTRAST MEDIUM (UNSPECIFIED) [Suspect]
     Indication: PRODUCT USED FOR UNKNOWN INDICATION
     Route: 065
  7. IMIPENEM AND CILASTATIN [Suspect]
     Route: 065
     Dates: start: 20100623, end: 20100709

REACTIONS (2)
  - RENAL FAILURE ACUTE [None]
  - SODIUM RETENTION [None]
